FAERS Safety Report 19537916 (Version 1)
Quarter: 2021Q3

REPORT INFORMATION
  Report Type: Spontaneous
  Country: ES (occurrence: ES)
  Receive Date: 20210713
  Receipt Date: 20210713
  Transmission Date: 20211014
  Serious: Yes (Other)
  Sender: FDA-Public Use
  Company Number: ES-LUPIN PHARMACEUTICALS INC.-2021-11545

PATIENT
  Age: 32 Year
  Sex: Male

DRUGS (4)
  1. TRIAMCINOLONE [Suspect]
     Active Substance: TRIAMCINOLONE
     Indication: INFLAMMATION
     Dosage: 40 MILLIGRAM PER MILLILITRE; INJECTION
     Route: 057
  2. BETAMETHASONE. [Suspect]
     Active Substance: BETAMETHASONE
     Indication: INFLAMMATION
     Dosage: UNK (1.5 CC)
     Route: 057
  3. ACETAZOLAMIDE. [Concomitant]
     Active Substance: ACETAZOLAMIDE
     Indication: POSTOPERATIVE CARE
     Dosage: UNK
     Route: 048
  4. CYCLOSPORINE. [Concomitant]
     Active Substance: CYCLOSPORINE
     Indication: IMMUNOSUPPRESSION
     Dosage: UNK
     Route: 048

REACTIONS (1)
  - Cataract [Recovered/Resolved]
